FAERS Safety Report 21312881 (Version 1)
Quarter: 2022Q3

REPORT INFORMATION
  Report Type: Report from Study
  Country: US (occurrence: US)
  Receive Date: 20220909
  Receipt Date: 20220909
  Transmission Date: 20221027
  Serious: Yes (Death)
  Sender: FDA-Public Use
  Company Number: US-SERVIER-S22009225

PATIENT

DRUGS (11)
  1. PEGASPARGASE [Suspect]
     Active Substance: PEGASPARGASE
     Indication: Philadelphia positive acute lymphocytic leukaemia
     Dosage: 3750 [IU]
     Route: 042
     Dates: start: 20220219, end: 20220813
  2. RUXOLITINIB [Suspect]
     Active Substance: RUXOLITINIB
     Indication: Philadelphia positive acute lymphocytic leukaemia
     Dosage: 100 MG, BID
     Route: 048
     Dates: start: 20220329, end: 20220823
  3. METHOTREXATE [Suspect]
     Active Substance: METHOTREXATE
     Indication: Philadelphia positive acute lymphocytic leukaemia
     Dosage: 15 MG
     Route: 037
     Dates: start: 20220223, end: 20220810
  4. DOXORUBICIN [Suspect]
     Active Substance: DOXORUBICIN
     Indication: Philadelphia positive acute lymphocytic leukaemia
     Dosage: 51 MG, 1X/WEEK
     Route: 042
     Dates: start: 20220810, end: 20220824
  5. DEXAMETHASONE [Suspect]
     Active Substance: DEXAMETHASONE
     Indication: Philadelphia positive acute lymphocytic leukaemia
     Dosage: 10 MG, BID
     Route: 048
     Dates: start: 20220810, end: 20220825
  6. VINCRISTINE [Suspect]
     Active Substance: VINCRISTINE
     Indication: Philadelphia positive acute lymphocytic leukaemia
     Dosage: 2 MG, 1X/WEEK
     Route: 042
     Dates: start: 20220216, end: 20220824
  7. FLUCONAZOLE [Concomitant]
     Active Substance: FLUCONAZOLE
     Indication: Product used for unknown indication
     Dosage: UNK
     Route: 065
     Dates: start: 20220819
  8. LANTUS [Concomitant]
     Active Substance: INSULIN GLARGINE
     Indication: Product used for unknown indication
     Dosage: UNK
     Route: 065
     Dates: start: 20220813
  9. HUMALOG [Concomitant]
     Active Substance: INSULIN LISPRO
     Indication: Product used for unknown indication
     Dosage: UNK
     Route: 065
     Dates: start: 20220819
  10. NEURONTIN [Concomitant]
     Active Substance: GABAPENTIN
     Indication: Product used for unknown indication
     Dosage: UNK
     Route: 065
     Dates: start: 20220819
  11. BACTRIM DS [Concomitant]
     Active Substance: SULFAMETHOXAZOLE\TRIMETHOPRIM
     Indication: Product used for unknown indication
     Dosage: UNK
     Route: 065
     Dates: start: 20220219

REACTIONS (1)
  - Sepsis [Fatal]

NARRATIVE: CASE EVENT DATE: 20220825
